FAERS Safety Report 7476633-5 (Version None)
Quarter: 2011Q2

REPORT INFORMATION
  Report Type: 
  Country: None (occurrence: None)
  Receive Date: 20110510
  Receipt Date: 20110510
  Transmission Date: 20111010
  Serious: Yes (Other)
  Sender: FDA-Public Use
  Company Number: None

PATIENT
  Age: 63 Year
  Sex: Female
  Weight: 53.5244 kg

DRUGS (1)
  1. ALENDRONATE SODIUM [Suspect]
     Indication: OSTEOPENIA
     Dosage: 1 70 MG TAB ONCE WEEKLY PO
     Route: 048
     Dates: start: 19881021, end: 20110312

REACTIONS (5)
  - MUSCLE SPASMS [None]
  - PAIN IN EXTREMITY [None]
  - BONE PAIN [None]
  - MUSCULAR WEAKNESS [None]
  - DISCOMFORT [None]
